FAERS Safety Report 8483078-8 (Version None)
Quarter: 2012Q3

REPORT INFORMATION
  Report Type: 
  Country: None (occurrence: None)
  Receive Date: 20120702
  Receipt Date: 20120625
  Transmission Date: 20120928
  Serious: Yes (Hospitalization)
  Sender: FDA-Public Use
  Company Number: IT-GENZYME-CERZ-1002319

PATIENT
  Sex: Female
  Weight: 18.8 kg

DRUGS (1)
  1. CEREZYME [Suspect]
     Indication: GAUCHER'S DISEASE
     Dosage: 800 U, Q2W
     Route: 042
     Dates: start: 20110504

REACTIONS (3)
  - LARYNGEAL OEDEMA [None]
  - RASH [None]
  - FACE OEDEMA [None]
